FAERS Safety Report 4733345-6 (Version None)
Quarter: 2005Q3

REPORT INFORMATION
  Report Type: 
  Country: None (occurrence: None)
  Receive Date: 20050801
  Receipt Date: 20050801
  Transmission Date: 20060218
  Serious: Yes (Life-Threatening, Hospitalization)
  Sender: FDA-Public Use
  Company Number: None

PATIENT
  Age: 81 Year
  Sex: Male
  Weight: 63.5036 kg

DRUGS (1)
  1. WARFARIN 5MG [Suspect]
     Indication: HEART VALVE REPLACEMENT
     Dosage: 25 MG MF / 5 MG ROW PO
     Route: 048
     Dates: start: 20041201

REACTIONS (3)
  - DIVERTICULUM INTESTINAL [None]
  - GASTROINTESTINAL HAEMORRHAGE [None]
  - INTERNATIONAL NORMALISED RATIO INCREASED [None]
